FAERS Safety Report 5940029-5 (Version None)
Quarter: 2008Q4

REPORT INFORMATION
  Report Type: 
  Country: None (occurrence: None)
  Receive Date: 20081104
  Receipt Date: 20081027
  Transmission Date: 20090506
  Serious: Yes (Other)
  Sender: FDA-Public Use
  Company Number: PHEH2008US08869

PATIENT
  Sex: Female

DRUGS (3)
  1. RECLAST [Suspect]
     Indication: OSTEOPOROSIS
     Dosage: YEARLY
     Route: 042
     Dates: start: 20070801
  2. LEVOXYL [Concomitant]
     Indication: HYPOTHYROIDISM
  3. CARAFATE [Concomitant]
     Indication: GASTRITIS

REACTIONS (2)
  - TOOTH EXTRACTION [None]
  - TOOTH RESORPTION [None]
